FAERS Safety Report 17692768 (Version 2)
Quarter: 2022Q4

REPORT INFORMATION
  Report Type: Other
  Country: DE (occurrence: DE)
  Receive Date: 20200422
  Receipt Date: 20221020
  Transmission Date: 20230113
  Serious: Yes (Hospitalization, Other)
  Sender: FDA-Public Use
  Company Number: DE-ADRED-04239-01

PATIENT
  Age: 44 Year
  Sex: Female
  Weight: 68 kg

DRUGS (4)
  1. LEVETIRACETAM [Suspect]
     Active Substance: LEVETIRACETAM
     Indication: Product used for unknown indication
     Dosage: 2500 MILLIGRAM, QD (1000 MG, 1-0-1.5-0)
     Route: 065
  2. AMLODIPINE [Concomitant]
     Active Substance: AMLODIPINE BESYLATE
     Indication: Product used for unknown indication
     Dosage: 5 MILLIGRAM, QD (1-0-0-0)
     Route: 065
  3. VITEX AGNUS CASTUS [Concomitant]
     Indication: Product used for unknown indication
     Dosage: 4 MILLIGRAM, QD ( 0-0-0-1)
     Route: 065
  4. ASPIRIN [Concomitant]
     Active Substance: ASPIRIN
     Indication: Product used for unknown indication
     Dosage: 100 MILLIGRAM, QD (0-1-0-0)
     Route: 065

REACTIONS (3)
  - Dizziness [Unknown]
  - Syncope [Unknown]
  - Vertigo [Unknown]

NARRATIVE: CASE EVENT DATE: 20190601
